FAERS Safety Report 20323972 (Version 2)
Quarter: 2022Q1

REPORT INFORMATION
  Report Type: Report from Study
  Country: US (occurrence: US)
  Receive Date: 20220111
  Receipt Date: 20220119
  Transmission Date: 20220423
  Serious: Yes (Other)
  Sender: FDA-Public Use
  Company Number: US-PFIZER INC-202101883306

PATIENT
  Age: 44 Year
  Sex: Female
  Weight: 61 kg

DRUGS (3)
  1. TALAZOPARIB [Suspect]
     Active Substance: TALAZOPARIB
     Dosage: CYCLE = 21 DAYS: 250 MCG ON DAYS 1-7
     Route: 048
     Dates: start: 20150910
  2. CARBOPLATIN [Suspect]
     Active Substance: CARBOPLATIN
     Dosage: CYCLE = 21 DAYS: AUC 5 IV OVER 30 MIN ON DAY 1
     Route: 042
     Dates: start: 20150910
  3. TAXOL [Suspect]
     Active Substance: PACLITAXEL
     Dosage: CYCLE = 21 DAYS: 80 MG/M2 IV OVER 1 HR ON DAYS 1, 8 AND 15
     Route: 042
     Dates: start: 20150910

REACTIONS (4)
  - Fatigue [Recovered/Resolved]
  - Nausea [Recovered/Resolved]
  - White blood cell count decreased [Recovered/Resolved]
  - Anaemia [Recovered/Resolved]

NARRATIVE: CASE EVENT DATE: 20150915
